FAERS Safety Report 4654601-6 (Version None)
Quarter: 2005Q2

REPORT INFORMATION
  Report Type: 
  Country: None (occurrence: None)
  Receive Date: 20050503
  Receipt Date: 20050503
  Transmission Date: 20051028
  Serious: Yes (Other)
  Sender: FDA-Public Use
  Company Number: None

PATIENT
  Age: 26 Year
  Sex: Male

DRUGS (5)
  1. RISPERIDONE [Suspect]
     Indication: SCHIZOPHRENIA
     Dosage: 4 MG  QHS   ORAL
     Route: 048
     Dates: start: 20050119, end: 20040214
  2. RISPERDAL CONSTA [Suspect]
     Indication: SCHIZOPHRENIA
     Dosage: 25 MG  Q2 WEEKS   INTRAMUSCU
     Route: 030
     Dates: start: 20050119, end: 20050214
  3. MULTI-VITAMIN [Concomitant]
  4. LORAZEPAM [Concomitant]
  5. HALOPERIDOL [Concomitant]

REACTIONS (1)
  - PAINFUL ERECTION [None]
